FAERS Safety Report 6992869-1 (Version None)
Quarter: 2010Q3

REPORT INFORMATION
  Report Type: 
  Country: None (occurrence: None)
  Receive Date: 20100917
  Receipt Date: 20100910
  Transmission Date: 20110219
  Serious: Yes (Hospitalization)
  Sender: FDA-Public Use
  Company Number: B0674290A

PATIENT
  Age: 56 Year
  Sex: Female

DRUGS (6)
  1. WELLBUTRIN XL [Suspect]
     Indication: DEPRESSION
     Dosage: 450MG PER DAY
     Route: 065
  2. STEROIDS [Concomitant]
     Route: 061
  3. DOVONEX [Concomitant]
     Indication: PSORIASIS
  4. GLUCOSAMINE [Concomitant]
  5. FISH OIL [Concomitant]
  6. ASCORBIC ACID [Concomitant]

REACTIONS (10)
  - BLISTER [None]
  - CONDITION AGGRAVATED [None]
  - GLOSSODYNIA [None]
  - LEUKOCYTOSIS [None]
  - PSORIASIS [None]
  - RASH PAPULAR [None]
  - SKIN EROSION [None]
  - SKIN EXFOLIATION [None]
  - SKIN LESION [None]
  - STEVENS-JOHNSON SYNDROME [None]
